FAERS Safety Report 8445888-2 (Version None)
Quarter: 2012Q2

REPORT INFORMATION
  Report Type: 
  Country: None (occurrence: None)
  Receive Date: 20120618
  Receipt Date: 20120521
  Transmission Date: 20120825
  Serious: No
  Sender: FDA-Public Use
  Company Number: US-ASTRAZENECA-1997AU00560

PATIENT
  Age: 75 Year
  Sex: Male
  Weight: 74.8 kg

DRUGS (11)
  1. PRILOSEC [Suspect]
     Indication: OESOPHAGEAL ULCER
     Route: 048
     Dates: start: 19940101
  2. PRILOSEC [Suspect]
     Indication: GASTROOESOPHAGEAL REFLUX DISEASE
     Route: 048
     Dates: start: 19940101
  3. XANAX [Concomitant]
  4. SYMBICORT [Suspect]
     Indication: RESPIRATORY DISORDER
     Dosage: 160/4.5 MCG, TWO PUFFS TWICE A DAY
     Route: 055
  5. PREVACID [Concomitant]
  6. LOTRIMIN [Concomitant]
  7. PROPULSID [Concomitant]
  8. DIABETA [Concomitant]
  9. LANSOPRAZOLE [Concomitant]
  10. CEFTIN [Concomitant]
     Dates: start: 19970201
  11. ZANTAC [Concomitant]

REACTIONS (9)
  - MUSCLE SPASMS [None]
  - FUNGAL INFECTION [None]
  - HEPATIC ENZYME INCREASED [None]
  - ERECTILE DYSFUNCTION [None]
  - PYREXIA [None]
  - OEDEMA PERIPHERAL [None]
  - ABDOMINAL PAIN UPPER [None]
  - INFLUENZA [None]
  - ANXIETY [None]
